FAERS Safety Report 17288008 (Version 1)
Quarter: 2020Q1

REPORT INFORMATION
  Report Type: Spontaneous
  Country: US (occurrence: US)
  Receive Date: 20200120
  Receipt Date: 20200120
  Transmission Date: 20200409
  Serious: No
  Sender: FDA-Public Use
  Company Number: US-CELGENEUS-USA-20200105187

PATIENT
  Sex: Male

DRUGS (2)
  1. THALOMID [Suspect]
     Active Substance: THALIDOMIDE
     Indication: SKIN DISORDER
  2. THALOMID [Suspect]
     Active Substance: THALIDOMIDE
     Indication: DERMATITIS ALLERGIC
     Route: 048

REACTIONS (2)
  - Autoimmune disorder [Unknown]
  - Pruritus [Unknown]
